FAERS Safety Report 16719104 (Version 1)
Quarter: 2019Q3

REPORT INFORMATION
  Report Type: Spontaneous
  Country: BE (occurrence: BE)
  Receive Date: 20190820
  Receipt Date: 20190820
  Transmission Date: 20191005
  Serious: Yes (Hospitalization)
  Sender: FDA-Public Use
  Company Number: BE-ACCORD-149248

PATIENT
  Age: 57 Year
  Sex: Male

DRUGS (4)
  1. CALCIUM CARBONATE/COLECALCIFEROL/SODIUM [Concomitant]
     Dosage: 500/400 MG/IE
  2. OLMESARTAN/OLMESARTAN MEDOXOMIL [Suspect]
     Active Substance: OLMESARTAN MEDOXOMIL
     Indication: PRODUCT USED FOR UNKNOWN INDICATION
  3. PANTOPRAZOLE [Concomitant]
     Active Substance: PANTOPRAZOLE
  4. FOLATE SODIUM/FOLIC ACID [Concomitant]

REACTIONS (1)
  - Gastrointestinal disorder [Recovered/Resolved]
